FAERS Safety Report 13909297 (Version 6)
Quarter: 2018Q4

REPORT INFORMATION
  Report Type: Report from Study
  Country: CZ (occurrence: CZ)
  Receive Date: 20170828
  Receipt Date: 20181008
  Transmission Date: 20190204
  Serious: Yes (Life-Threatening, Other)
  Sender: FDA-Public Use
  Company Number: CZ-ROCHE-1982752

PATIENT

DRUGS (7)
  1. RITUXIMAB. [Suspect]
     Active Substance: RITUXIMAB
     Indication: MANTLE CELL LYMPHOMA
     Route: 042
  2. HYDROXYDAUNORUBICIN [Suspect]
     Active Substance: DOXORUBICIN
     Indication: MANTLE CELL LYMPHOMA
     Route: 065
  3. PREDNISOLONE. [Suspect]
     Active Substance: PREDNISOLONE
     Indication: MANTLE CELL LYMPHOMA
     Route: 065
  4. ETOPOSIDE. [Suspect]
     Active Substance: ETOPOSIDE
     Indication: MANTLE CELL LYMPHOMA
     Route: 065
  5. CYCLOPHOSPHAMIDE. [Suspect]
     Active Substance: CYCLOPHOSPHAMIDE
     Indication: MANTLE CELL LYMPHOMA
     Route: 065
  6. VINCRISTINE [Suspect]
     Active Substance: VINCRISTINE
     Indication: MANTLE CELL LYMPHOMA
     Route: 065
  7. ARA-C [Suspect]
     Active Substance: CYTARABINE
     Indication: MANTLE CELL LYMPHOMA
     Dosage: 1 OR 2 MG.SQ.M/DAY, 2 DOSES
     Route: 065

REACTIONS (12)
  - Febrile neutropenia [Unknown]
  - Anaemia [Unknown]
  - Aspiration pleural cavity [Unknown]
  - Septic shock [Unknown]
  - Pneumonia [Unknown]
  - Neutropenia [Unknown]
  - Pleural effusion [Unknown]
  - Thrombocytopenia [Unknown]
  - Pulmonary toxicity [Unknown]
  - Lymphocytosis [Unknown]
  - Hypersensitivity [Unknown]
  - Urethritis [Unknown]
